FAERS Safety Report 16155442 (Version 3)
Quarter: 2019Q2

REPORT INFORMATION
  Report Type: Spontaneous
  Country: DZ (occurrence: DZ)
  Receive Date: 20190403
  Receipt Date: 20190508
  Transmission Date: 20190711
  Serious: Yes (Other)
  Sender: FDA-Public Use
  Company Number: DZ-BAXTER-2019BAX006341

PATIENT
  Age: 3 Year
  Sex: Female

DRUGS (4)
  1. OXYGEN. [Concomitant]
     Active Substance: OXYGEN
     Indication: PRODUCT USED FOR UNKNOWN INDICATION
     Dosage: 100% O2
     Route: 055
  2. ATROPINE. [Suspect]
     Active Substance: ATROPINE
     Indication: PREMEDICATION
     Route: 065
  3. SOLU-MEDROL [Suspect]
     Active Substance: METHYLPREDNISOLONE SODIUM SUCCINATE
     Indication: PREMEDICATION
     Route: 065
  4. SEVOFLURANE USP [Suspect]
     Active Substance: SEVOFLURANE
     Indication: SEDATIVE THERAPY
     Dosage: FGF : 6L/MIN, FOR 2 MINUTES
     Route: 055

REACTIONS (2)
  - Bronchospasm [Recovered/Resolved]
  - Oxygen saturation decreased [Recovered/Resolved]
